FAERS Safety Report 6572504-7 (Version None)
Quarter: 2010Q1

REPORT INFORMATION
  Report Type: 
  Country: None (occurrence: None)
  Receive Date: 20100205
  Receipt Date: 20100129
  Transmission Date: 20100710
  Serious: Yes (Hospitalization)
  Sender: FDA-Public Use
  Company Number: GB-AMGEN-QUU389321

PATIENT
  Sex: Female

DRUGS (1)
  1. ARANESP [Suspect]
     Indication: DRUG USE FOR UNKNOWN INDICATION
     Dates: start: 20100113

REACTIONS (4)
  - BLOOD PRESSURE INCREASED [None]
  - EPISTAXIS [None]
  - EYE HAEMORRHAGE [None]
  - VISUAL ACUITY REDUCED [None]
